FAERS Safety Report 11365865 (Version 1)
Quarter: 2015Q3

REPORT INFORMATION
  Report Type: Spontaneous
  Country: BR (occurrence: BR)
  Receive Date: 20150811
  Receipt Date: 20150811
  Transmission Date: 20151125
  Serious: Yes (Other)
  Sender: FDA-Public Use
  Company Number: PHHY2015BR096946

PATIENT
  Age: 66 Year
  Sex: Male
  Weight: 92 kg

DRUGS (1)
  1. DIOVAN AMLO FIX [Suspect]
     Active Substance: AMLODIPINE\VALSARTAN
     Indication: HYPERTENSION
     Dosage: 1 DF, QD (IN THE MORNING)
     Route: 048

REACTIONS (3)
  - Hyperthyroidism [Not Recovered/Not Resolved]
  - Glaucoma [Unknown]
  - Joint swelling [Recovered/Resolved]
